FAERS Safety Report 4572021-X (Version None)
Quarter: 2005Q1

REPORT INFORMATION
  Report Type: 
  Country: None (occurrence: None)
  Receive Date: 20050202
  Receipt Date: 20050121
  Transmission Date: 20050727
  Serious: Yes (Other)
  Sender: FDA-Public Use
  Company Number: 200510320BCC

PATIENT
  Age: 45 Year
  Sex: Female
  Weight: 136.0791 kg

DRUGS (1)
  1. ALEVE (CAPLET) [Suspect]
     Indication: PAIN
     Dosage: 660 MG, IRR, ORAL
     Route: 048
     Dates: start: 20040101, end: 20050101

REACTIONS (2)
  - BLOOD URINE PRESENT [None]
  - RENAL HAEMORRHAGE [None]
